FAERS Safety Report 9684344 (Version 2)
Quarter: 2014Q1

REPORT INFORMATION
  Report Type: Spontaneous
  Country: US (occurrence: US)
  Receive Date: 20131112
  Receipt Date: 20140110
  Transmission Date: 20141002
  Serious: Yes (Other)
  Sender: FDA-Public Use
  Company Number: US-TEVA-443587USA

PATIENT
  Sex: Female

DRUGS (1)
  1. PARAGARD 380A [Suspect]
     Indication: CONTRACEPTION
     Route: 015
     Dates: start: 201303, end: 20131212

REACTIONS (5)
  - Device dislocation [Recovered/Resolved]
  - Coital bleeding [Unknown]
  - Discomfort [Unknown]
  - Menorrhagia [Unknown]
  - Dysmenorrhoea [Unknown]
